FAERS Safety Report 9900462 (Version 6)
Quarter: 2014Q2

REPORT INFORMATION
  Report Type: Report from Study
  Country: US (occurrence: US)
  Receive Date: 20140217
  Receipt Date: 20140630
  Transmission Date: 20141212
  Serious: Yes (Hospitalization, Other)
  Sender: FDA-Public Use
  Company Number: US-BIOGENIDEC-2014BI014380

PATIENT
  Age: 62 Year
  Sex: Male

DRUGS (1)
  1. AVONEX [Suspect]
     Indication: MULTIPLE SCLEROSIS
     Route: 030
     Dates: start: 20000401

REACTIONS (10)
  - Post procedural complication [Recovered/Resolved]
  - Acute myocardial infarction [Recovered/Resolved]
  - Hypotonia [Not Recovered/Not Resolved]
  - Personality change [Recovered/Resolved]
  - Hypertension [Not Recovered/Not Resolved]
  - Tobacco withdrawal symptoms [Recovered/Resolved]
  - Renal function test abnormal [Unknown]
  - Anxiety [Recovered/Resolved]
  - Depression [Recovered/Resolved]
  - Muscular weakness [Unknown]
